FAERS Safety Report 7716218-6 (Version None)
Quarter: 2011Q3

REPORT INFORMATION
  Report Type: 
  Country: None (occurrence: None)
  Receive Date: 20110829
  Receipt Date: 20110819
  Transmission Date: 20111222
  Serious: Yes (Hospitalization)
  Sender: FDA-Public Use
  Company Number: BR-ASTRAZENECA-2011SE50243

PATIENT
  Age: 68 Year
  Sex: Female
  Weight: 104 kg

DRUGS (6)
  1. METFORMIN HYDROCHLORIDE [Concomitant]
     Indication: DIABETES MELLITUS
     Dosage: TWO TIMES A DAY
     Route: 048
  2. METILDOPA [Concomitant]
     Indication: HYPERTENSION
     Dosage: TWO TIMES A DAY
     Route: 048
  3. CALTREN [Concomitant]
     Indication: HYPERTENSION
     Dosage: DAILY
     Route: 048
  4. LABIRIN [Concomitant]
     Indication: PROPHYLAXIS
     Dosage: THREE TIMES A DAY
     Route: 048
  5. COMBIGAN [Suspect]
     Indication: GLAUCOMA
     Dosage: 1 DROP EACH EYE TWO TIMES A DAY
     Dates: start: 20110501, end: 20110801
  6. ATACAND HCT [Suspect]
     Indication: HYPERTENSION
     Dosage: 16+15.5 MG DAILY
     Route: 048
     Dates: end: 20110803

REACTIONS (3)
  - GLAUCOMA [None]
  - PNEUMONIA [None]
  - BRONCHITIS [None]
